FAERS Safety Report 25041693 (Version 1)
Quarter: 2025Q1

REPORT INFORMATION
  Report Type: Report from Study
  Country: MX (occurrence: MX)
  Receive Date: 20250305
  Receipt Date: 20250305
  Transmission Date: 20250408
  Serious: Yes (Death)
  Sender: MYLAN
  Company Number: MX-MYLANLABS-2025M1019062

PATIENT
  Age: 70 Year
  Sex: Female

DRUGS (6)
  1. VORICONAZOLE [Suspect]
     Active Substance: VORICONAZOLE
     Indication: Fusarium infection
  2. VORICONAZOLE [Suspect]
     Active Substance: VORICONAZOLE
     Indication: Sinusitis
  3. CASPOFUNGIN [Suspect]
     Active Substance: CASPOFUNGIN
     Indication: Fusarium infection
  4. CASPOFUNGIN [Suspect]
     Active Substance: CASPOFUNGIN
     Indication: Sinusitis
  5. AMPHOTERICIN B [Suspect]
     Active Substance: AMPHOTERICIN B
     Indication: Fusarium infection
  6. AMPHOTERICIN B [Suspect]
     Active Substance: AMPHOTERICIN B
     Indication: Sinusitis

REACTIONS (1)
  - Drug ineffective [Fatal]
